FAERS Safety Report 6693199-8 (Version None)
Quarter: 2010Q2

REPORT INFORMATION
  Report Type: 
  Country: None (occurrence: None)
  Receive Date: 20100421
  Receipt Date: 20100421
  Transmission Date: 20101027
  Serious: Yes (Hospitalization)
  Sender: FDA-Public Use
  Company Number: None

PATIENT
  Sex: Male
  Weight: 82.1 kg

DRUGS (5)
  1. ERLOTINIB HYDROCHLORIDE [Suspect]
     Indication: COLON CANCER METASTATIC
     Dosage: 150 MG EVERY DAY PO
     Route: 048
     Dates: start: 20100322, end: 20100405
  2. LIPITOR [Concomitant]
  3. GLUCOTROL [Concomitant]
  4. TOPROL-XL [Concomitant]
  5. NORVASC [Concomitant]

REACTIONS (2)
  - BLOOD GLUCOSE DECREASED [None]
  - UNRESPONSIVE TO STIMULI [None]
